FAERS Safety Report 10665344 (Version 2)
Quarter: 2014Q4

REPORT INFORMATION
  Report Type: Spontaneous
  Country: US (occurrence: US)
  Receive Date: 20141219
  Receipt Date: 20141219
  Transmission Date: 20150529
  Serious: Yes (Hospitalization, Other)
  Sender: FDA-Public Use
  Company Number: US-HORIZON-2014VID00026

PATIENT
  Age: 16 Year
  Sex: Male
  Weight: 50.45 kg

DRUGS (2)
  1. ACTIMMUNE [Suspect]
     Active Substance: INTERFERON GAMMA-1B
     Indication: CHRONIC GRANULOMATOUS DISEASE
     Dosage: DAILY DOSE: 216 ?G MICROGRAM(S) EVERY WEEKS
     Route: 058
     Dates: start: 201312
  2. POSCONAZOLE [Concomitant]
     Dosage: DAILY DOSE: 300 MG MILLGRAM(S) EVERY DAYS
     Dates: start: 20140731

REACTIONS (5)
  - Pneumonitis [Not Recovered/Not Resolved]
  - Aspartate aminotransferase increased [Unknown]
  - Pneumonia [Unknown]
  - Alanine aminotransferase increased [Unknown]
  - Throat lesion [Unknown]

NARRATIVE: CASE EVENT DATE: 20140724
